FAERS Safety Report 7653758-2 (Version None)
Quarter: 2011Q3

REPORT INFORMATION
  Report Type: 
  Country: None (occurrence: None)
  Receive Date: 20110803
  Receipt Date: 20110715
  Transmission Date: 20111222
  Serious: Yes (Death, Hospitalization)
  Sender: FDA-Public Use
  Company Number: US-GLAXOSMITHKLINE-A0939406A

PATIENT
  Age: 80 Year
  Sex: Male

DRUGS (6)
  1. AVAPRO [Concomitant]
  2. INSULIN [Concomitant]
  3. AVANDIA [Suspect]
     Indication: DIABETES MELLITUS
     Dosage: 4MG PER DAY
     Route: 048
     Dates: start: 19990101, end: 20061101
  4. ZIAC [Concomitant]
  5. CADUET [Concomitant]
  6. TEMAZEPAM [Concomitant]

REACTIONS (4)
  - HYPOXIC-ISCHAEMIC ENCEPHALOPATHY [None]
  - VENTRICULAR FIBRILLATION [None]
  - CARDIO-RESPIRATORY ARREST [None]
  - VENTRICULAR ARRHYTHMIA [None]
